FAERS Safety Report 4301173-1 (Version None)
Quarter: 2004Q1

REPORT INFORMATION
  Report Type: 
  Country: None (occurrence: None)
  Receive Date: 20040218
  Receipt Date: 20031030
  Transmission Date: 20041129
  Serious: No
  Sender: FDA-Public Use
  Company Number: 2003-10-3190

PATIENT
  Age: 16 Year
  Sex: Male

DRUGS (1)
  1. PEG-INTRON [Suspect]
     Indication: HEPATITIS C
     Dosage: UNKNOWN SUBCUTANEOUS

REACTIONS (3)
  - MYALGIA [None]
  - NAUSEA [None]
  - VOMITING [None]
